FAERS Safety Report 17334688 (Version 3)
Quarter: 2022Q2

REPORT INFORMATION
  Report Type: Spontaneous
  Country: CA (occurrence: CA)
  Receive Date: 20200128
  Receipt Date: 20220524
  Transmission Date: 20220721
  Serious: Yes (Death, Other)
  Sender: FDA-Public Use
  Company Number: CA-SUN PHARMACEUTICAL INDUSTRIES LTD-2020R1-234138

PATIENT
  Age: 60 Year
  Sex: Female

DRUGS (1)
  1. ACETAMINOPHEN [Suspect]
     Active Substance: ACETAMINOPHEN
     Indication: Influenza
     Dosage: 8-10 GRAM DAILY
     Route: 048

REACTIONS (5)
  - Pulmonary mucormycosis [Fatal]
  - Acute hepatic failure [Unknown]
  - Overdose [Unknown]
  - Toxicity to various agents [Unknown]
  - Encephalopathy [Unknown]
